FAERS Safety Report 21847644 (Version 1)
Quarter: 2023Q1

REPORT INFORMATION
  Report Type: Spontaneous
  Country: IN (occurrence: IN)
  Receive Date: 20230111
  Receipt Date: 20230111
  Transmission Date: 20230417
  Serious: Yes (Other)
  Sender: FDA-Public Use
  Company Number: IN-AMGEN-INDSP2023001340

PATIENT
  Age: 8 Year
  Sex: Male

DRUGS (4)
  1. ROMIPLOSTIM [Suspect]
     Active Substance: ROMIPLOSTIM
     Indication: Aplastic anaemia
     Dosage: UNK
     Route: 065
  2. ELTROMBOPAG [Suspect]
     Active Substance: ELTROMBOPAG
     Indication: Aplastic anaemia
     Dosage: UNK
     Route: 065
  3. DANAZOL [Suspect]
     Active Substance: DANAZOL
     Indication: Aplastic anaemia
     Dosage: UNK
     Route: 065
  4. ANTI-THYMOCYTE GLOBULIN (RABBIT) NOS [Suspect]
     Active Substance: LAPINE T-LYMPHOCYTE IMMUNE GLOBULIN
     Indication: Aplastic anaemia
     Route: 065

REACTIONS (8)
  - Acute graft versus host disease in intestine [Unknown]
  - Clostridium difficile colitis [Unknown]
  - Nephrogenic diabetes insipidus [Unknown]
  - Cytomegalovirus infection reactivation [Unknown]
  - Engraft failure [Unknown]
  - BK virus infection [Unknown]
  - Therapy non-responder [Unknown]
  - Off label use [Unknown]
